FAERS Safety Report 4381728-9 (Version None)
Quarter: 2004Q2

REPORT INFORMATION
  Report Type: 
  Country: None (occurrence: None)
  Receive Date: 20040614
  Receipt Date: 20031014
  Transmission Date: 20050107
  Serious: Yes (Hospitalization)
  Sender: FDA-Public Use
  Company Number: 2003181462US

PATIENT
  Age: 85 Year
  Sex: Male
  Weight: 72 kg

DRUGS (2)
  1. ZYVOX [Suspect]
     Indication: OSTEOMYELITIS
     Dosage: 600 MG, BID, ORAL
     Route: 048
     Dates: start: 20010101, end: 20030901
  2. RIFAMPICIN [Concomitant]

REACTIONS (1)
  - HAEMATOCRIT DECREASED [None]
